FAERS Safety Report 9314348 (Version 2)
Quarter: 2013Q3

REPORT INFORMATION
  Report Type: Spontaneous
  Country: US (occurrence: None)
  Receive Date: 20130522
  Receipt Date: 20130809
  Transmission Date: 20140515
  Serious: Yes (Hospitalization)
  Sender: FDA-Public Use
  Company Number: US-011739

PATIENT
  Age: 77 Year
  Sex: Male
  Weight: 55.79 kg

DRUGS (3)
  1. FIRMAGON [Suspect]
     Indication: PROSTATE CANCER
     Dosage: (LOADING DOSE)
     Dates: start: 20121114, end: 20121114
  2. PRINIVIL [Concomitant]
  3. TIMOLOL MALEATE [Concomitant]

REACTIONS (9)
  - Unresponsive to stimuli [None]
  - Urticaria [None]
  - Hot flush [None]
  - Local swelling [None]
  - Local swelling [None]
  - Hyperhidrosis [None]
  - Contusion [None]
  - Chills [None]
  - Fall [None]
